FAERS Safety Report 8518732-2 (Version None)
Quarter: 2012Q3

REPORT INFORMATION
  Report Type: 
  Country: None (occurrence: None)
  Receive Date: 20120718
  Receipt Date: 20120709
  Transmission Date: 20120928
  Serious: Yes (Other)
  Sender: FDA-Public Use
  Company Number: PHHY2012FR059488

PATIENT
  Sex: Male
  Weight: 60 kg

DRUGS (1)
  1. ONBREZ [Suspect]
     Indication: RESPIRATORY FAILURE
     Dosage: UNK
     Dates: start: 20110301, end: 20110328

REACTIONS (11)
  - LUNG HYPERINFLATION [None]
  - DYSPNOEA [None]
  - RESPIRATORY DISTRESS [None]
  - HAEMOPHILUS INFECTION [None]
  - EMPHYSEMA [None]
  - HAEMORRHAGE [None]
  - PRODUCTIVE COUGH [None]
  - PRESYNCOPE [None]
  - COUGH [None]
  - LUNG DISORDER [None]
  - HYPOXIA [None]
